FAERS Safety Report 9637943 (Version 1)
Quarter: 2013Q4

REPORT INFORMATION
  Report Type: Spontaneous
  Country: US (occurrence: US)
  Receive Date: 20131022
  Receipt Date: 20131022
  Transmission Date: 20140711
  Serious: Yes (Hospitalization, Other)
  Sender: FDA-Public Use
  Company Number: US-ELI_LILLY_AND_COMPANY-US201310004301

PATIENT
  Age: 65 Year
  Sex: Male
  Weight: 78.46 kg

DRUGS (1)
  1. HUMALOG LISPRO [Suspect]
     Indication: PRODUCT USED FOR UNKNOWN INDICATION
     Dosage: UNK, PRN
     Route: 058

REACTIONS (6)
  - Hypoglycaemic unconsciousness [Unknown]
  - Hypoglycaemic seizure [Unknown]
  - Head injury [Unknown]
  - Blood glucose decreased [Unknown]
  - Blood glucose increased [Unknown]
  - Incorrect dose administered [Unknown]
